FAERS Safety Report 16351610 (Version 1)
Quarter: 2019Q3

REPORT INFORMATION
  Report Type: Spontaneous
  Country: US (occurrence: US)
  Receive Date: 20190523
  Receipt Date: 20190523
  Transmission Date: 20191004
  Serious: No
  Sender: FDA-Public Use
  Company Number: None

PATIENT
  Age: 40 Year
  Sex: Female
  Weight: 58.5 kg

DRUGS (7)
  1. AIMOVIG [Suspect]
     Active Substance: ERENUMAB-AOOE
     Indication: MIGRAINE
     Dosage: ?          QUANTITY:1 INJECTION(S);OTHER FREQUENCY:ONCE A MONTH;?
     Dates: start: 20190101, end: 20190504
  2. CLARITON [Concomitant]
     Active Substance: UNSPECIFIED INGREDIENT
  3. VERAPAMIL [Concomitant]
     Active Substance: VERAPAMIL HYDROCHLORIDE
  4. MULTIVITAMIN [Concomitant]
     Active Substance: VITAMINS
  5. RIBOFLAVIN [Concomitant]
     Active Substance: RIBOFLAVIN
  6. MAGNESIUM [Concomitant]
     Active Substance: MAGNESIUM
  7. BOSWELIA [Concomitant]

REACTIONS (2)
  - Diverticulitis [None]
  - Constipation [None]

NARRATIVE: CASE EVENT DATE: 20190522
